FAERS Safety Report 24322801 (Version 1)
Quarter: 2024Q3

REPORT INFORMATION
  Report Type: Spontaneous
  Country: US (occurrence: US)
  Receive Date: 20240916
  Receipt Date: 20240916
  Transmission Date: 20241016
  Serious: Yes (Hospitalization)
  Sender: AMGEN
  Company Number: US-AMGEN-USASP2024183048

PATIENT
  Sex: Female

DRUGS (2)
  1. RAVICTI [Suspect]
     Active Substance: GLYCEROL PHENYLBUTYRATE
     Indication: Ornithine transcarbamoylase deficiency
     Dosage: 5.5 MILLILITER, TID (1.1 GRAMS/ML 25ML BT, TOTAL DAILY DOSE IS 16.5 ML)
     Route: 048
  2. CITRULLINE 1000 [Concomitant]
     Dosage: UNK (1 G/4 G)

REACTIONS (1)
  - Hospitalisation [Unknown]
